FAERS Safety Report 10160759 (Version 1)
Quarter: 2014Q2

REPORT INFORMATION
  Report Type: Spontaneous
  Country: IT (occurrence: IT)
  Receive Date: 20140508
  Receipt Date: 20140508
  Transmission Date: 20141212
  Serious: Yes (Other)
  Sender: FDA-Public Use
  Company Number: CHPA2014IT005902

PATIENT
  Sex: Female

DRUGS (1)
  1. BENEFIBRA [Suspect]

REACTIONS (2)
  - Irritable bowel syndrome [Not Recovered/Not Resolved]
  - Abdominal pain [Not Recovered/Not Resolved]
